FAERS Safety Report 9384979 (Version 6)
Quarter: 2013Q4

REPORT INFORMATION
  Report Type: Spontaneous
  Country: US (occurrence: US)
  Receive Date: 20130705
  Receipt Date: 20131210
  Transmission Date: 20140711
  Serious: Yes (Life-Threatening, Hospitalization, Congenital Anomaly, Other)
  Sender: FDA-Public Use
  Company Number: US-JNJFOC-20130700046

PATIENT
  Age: 3 Year
  Sex: Male

DRUGS (6)
  1. TOPAMAX [Suspect]
     Indication: MIGRAINE
     Dosage: MOTHER^S DOSING
     Route: 064
     Dates: start: 200703, end: 200711
  2. CLONAZEPAM [Suspect]
     Indication: PRODUCT USED FOR UNKNOWN INDICATION
     Route: 048
  3. MIDRIN [Suspect]
     Indication: MIGRAINE
     Route: 064
  4. BUTALBITAL [Suspect]
     Indication: PRODUCT USED FOR UNKNOWN INDICATION
     Route: 064
  5. AMITRIPTYLIN [Suspect]
     Indication: PRODUCT USED FOR UNKNOWN INDICATION
     Route: 064
  6. PRENATAL VITAMINS [Concomitant]
     Indication: PRODUCT USED FOR UNKNOWN INDICATION
     Route: 064

REACTIONS (21)
  - Foetal exposure during pregnancy [Recovered/Resolved]
  - Cryptorchism [Not Recovered/Not Resolved]
  - Macrocephaly [Unknown]
  - Atrial septal defect [Recovered/Resolved]
  - Hypertonia [Unknown]
  - Hypotonia [Unknown]
  - Developmental delay [Unknown]
  - Obesity [Unknown]
  - Torticollis [Unknown]
  - Asthma [Recovered/Resolved]
  - Stridor [Unknown]
  - Anaemia [Recovering/Resolving]
  - Bronchiolitis [Recovering/Resolving]
  - Gastrointestinal disorder [Not Recovered/Not Resolved]
  - Developmental hip dysplasia [Not Recovered/Not Resolved]
  - Thrombosis [Not Recovered/Not Resolved]
  - Skull malformation [Unknown]
  - Emotional disorder [Unknown]
  - Ill-defined disorder [Not Recovered/Not Resolved]
  - Scoliosis [Recovering/Resolving]
  - Cardiac murmur [Recovered/Resolved]
